FAERS Safety Report 23281138 (Version 1)
Quarter: 2023Q4

REPORT INFORMATION
  Report Type: Spontaneous
  Country: JP (occurrence: None)
  Receive Date: 20231211
  Receipt Date: 20231211
  Transmission Date: 20240109
  Serious: Yes (Other)
  Sender: FDA-Public Use
  Company Number: JP-ROCHE-3471820

PATIENT
  Age: 6 Decade
  Sex: Male

DRUGS (1)
  1. XOLAIR [Suspect]
     Active Substance: OMALIZUMAB
     Indication: Influenza
     Route: 048

REACTIONS (1)
  - Colitis ischaemic [Recovering/Resolving]
